FAERS Safety Report 10076202 (Version 2)
Quarter: 2014Q2

REPORT INFORMATION
  Report Type: Report from Study
  Country: CA (occurrence: CA)
  Receive Date: 20140414
  Receipt Date: 20140515
  Transmission Date: 20141212
  Serious: Yes (Hospitalization)
  Sender: FDA-Public Use
  Company Number: PHHY2014CA044378

PATIENT
  Sex: Male
  Weight: 117.91 kg

DRUGS (2)
  1. SANDOSTATIN LAR [Suspect]
     Indication: IRON DEFICIENCY ANAEMIA
     Dosage: 20 MG, QMO
     Route: 030
     Dates: start: 201301
  2. SANDOSTATIN LAR [Suspect]
     Indication: OFF LABEL USE

REACTIONS (11)
  - Loss of consciousness [Unknown]
  - Depressed level of consciousness [Unknown]
  - Blood pressure decreased [Unknown]
  - Memory impairment [Unknown]
  - Hepatic pain [Unknown]
  - Appetite disorder [Unknown]
  - Weight decreased [Unknown]
  - Overweight [Unknown]
  - Abdominal distension [Unknown]
  - Abdominal pain upper [Unknown]
  - Injection site discomfort [Unknown]
